FAERS Safety Report 9830876 (Version 1)
Quarter: 2014Q1

REPORT INFORMATION
  Report Type: Spontaneous
  Country: US (occurrence: US)
  Receive Date: 20140120
  Receipt Date: 20140120
  Transmission Date: 20141002
  Serious: Yes (Other)
  Sender: FDA-Public Use
  Company Number: PHHY2014US004722

PATIENT
  Age: 57 Year
  Sex: Female

DRUGS (9)
  1. BACLOFEN INTRATHECAL [Suspect]
     Indication: PAIN
     Dosage: 224.83 UG, DAILY
     Route: 037
  2. BACLOFEN INTRATHECAL [Suspect]
     Dosage: UNK UKN, UNK
     Route: 037
  3. IBUPROFEN [Suspect]
     Indication: PAIN
     Dosage: 800 MG, UNK
     Route: 048
  4. FENTANYL [Suspect]
     Dosage: 2810.4 UG, DAILY
     Route: 037
  5. FENTANYL [Suspect]
     Dosage: UNK UKN, UNK
  6. BUPIVACAINE [Suspect]
     Dosage: 10.118 MG, DAILY
     Route: 037
  7. BUPIVACAINE [Suspect]
     Dosage: UNK UKN, UNK
     Route: 037
  8. OXYCODONE [Suspect]
     Indication: PAIN
     Dosage: 15 MG, UNK
     Route: 048
  9. FLEXURAL [Concomitant]
     Dosage: 10 MG, UNK

REACTIONS (4)
  - Somnolence [Unknown]
  - Medical device discomfort [Unknown]
  - Pain [Not Recovered/Not Resolved]
  - No therapeutic response [Unknown]
